FAERS Safety Report 6697309-8 (Version None)
Quarter: 2010Q2

REPORT INFORMATION
  Report Type: 
  Country: None (occurrence: None)
  Receive Date: 20100422
  Receipt Date: 20100415
  Transmission Date: 20101027
  Serious: Yes (Other)
  Sender: FDA-Public Use
  Company Number: 20108612

PATIENT
  Age: 10 Year
  Sex: Female

DRUGS (1)
  1. LIORESAL [Suspect]
     Indication: MUSCLE SPASTICITY
     Dosage: MCG, DAILY, INTRATHECAL -SEE B

REACTIONS (12)
  - ASTHENIA [None]
  - CONSTIPATION [None]
  - EYE ROLLING [None]
  - HEADACHE [None]
  - HYPOTONIA [None]
  - INCONTINENCE [None]
  - MEDICAL DEVICE COMPLICATION [None]
  - MUSCLE SPASMS [None]
  - MUSCLE SPASTICITY [None]
  - PAIN IN EXTREMITY [None]
  - SOMNOLENCE [None]
  - UNRESPONSIVE TO STIMULI [None]
